FAERS Safety Report 20585632 (Version 2)
Quarter: 2022Q1

REPORT INFORMATION
  Report Type: Spontaneous
  Country: DE (occurrence: DE)
  Receive Date: 20220312
  Receipt Date: 20220325
  Transmission Date: 20220423
  Serious: Yes (Hospitalization, Other)
  Sender: FDA-Public Use
  Company Number: DE-BRISTOL-MYERS SQUIBB COMPANY-BMS-2022-035963

PATIENT
  Age: 30 Year
  Sex: Male
  Weight: 190 kg

DRUGS (2)
  1. ELIQUIS [Suspect]
     Active Substance: APIXABAN
     Indication: Pulmonary embolism
     Route: 048
  2. ELIQUIS [Suspect]
     Active Substance: APIXABAN
     Route: 048
     Dates: start: 20210520, end: 20220310

REACTIONS (7)
  - Myocardial infarction [Unknown]
  - Pulmonary embolism [Unknown]
  - Intentional product use issue [Unknown]
  - Fibrin D dimer increased [Unknown]
  - Anti factor Xa activity decreased [Unknown]
  - Troponin increased [Recovered/Resolved]
  - Drug ineffective [Unknown]

NARRATIVE: CASE EVENT DATE: 20210821
